FAERS Safety Report 18305510 (Version 2)
Quarter: 2020Q4

REPORT INFORMATION
  Report Type: Spontaneous
  Country: JP (occurrence: JP)
  Receive Date: 20200923
  Receipt Date: 20201002
  Transmission Date: 20210113
  Serious: Yes (Hospitalization)
  Sender: FDA-Public Use
  Company Number: JP-ANIPHARMA-2020-JP-000341

PATIENT
  Age: 64 Year
  Sex: Female

DRUGS (6)
  1. ETHYL ICOSAPENTATE [Concomitant]
     Active Substance: ICOSAPENT ETHYL
     Route: 065
  2. BEZAFIBRATE [Concomitant]
     Active Substance: BEZAFIBRATE
     Route: 065
  3. KEFRAL [Concomitant]
     Active Substance: CEFACLOR
     Route: 065
     Dates: start: 20200829, end: 20200901
  4. ANASTROZOLE. [Suspect]
     Active Substance: ANASTROZOLE
     Indication: PRODUCT USED FOR UNKNOWN INDICATION
     Dosage: 1 MG DAILY
     Route: 048
     Dates: start: 20191001, end: 20200902
  5. FEBURIC [Suspect]
     Active Substance: FEBUXOSTAT
     Route: 048
     Dates: end: 20200907
  6. ROSUVASTATIN CALCIUM. [Concomitant]
     Active Substance: ROSUVASTATIN CALCIUM
     Route: 065

REACTIONS (3)
  - Visual acuity reduced [Not Recovered/Not Resolved]
  - Bradycardia [Unknown]
  - Hepatic function abnormal [None]

NARRATIVE: CASE EVENT DATE: 20200823
